FAERS Safety Report 7900893-7 (Version None)
Quarter: 2011Q4

REPORT INFORMATION
  Report Type: 
  Country: None (occurrence: None)
  Receive Date: 20111104
  Receipt Date: 20111025
  Transmission Date: 20120403
  Serious: Yes (Death, Other)
  Sender: FDA-Public Use
  Company Number: US-2011-10494

PATIENT
  Age: 84 Year
  Sex: Male

DRUGS (2)
  1. BUSULFAN [Suspect]
     Indication: STEM CELL TRANSPLANT
     Dosage: ORAL
     Route: 048
  2. GANCICLOVIR (GANCICLOVIR SODIUM) [Concomitant]

REACTIONS (2)
  - ACINETOBACTER TEST POSITIVE [None]
  - CYTOMEGALOVIRUS INFECTION [None]
